FAERS Safety Report 4596383-2 (Version None)
Quarter: 2005Q1

REPORT INFORMATION
  Report Type: 
  Country: None (occurrence: None)
  Receive Date: 20050228
  Receipt Date: 20050217
  Transmission Date: 20050727
  Serious: No
  Sender: FDA-Public Use
  Company Number: 2005SE00976

PATIENT
  Age: 50 Year
  Sex: Female

DRUGS (4)
  1. AMIAS [Suspect]
     Indication: HYPERTENSION
     Dosage: 4 MG DAILY PO
     Route: 048
     Dates: start: 20040107, end: 20041021
  2. FOLIC ACID [Concomitant]
  3. ASPIRIN [Concomitant]
  4. BISOPROLOL FUMARATE [Concomitant]

REACTIONS (2)
  - DIZZINESS [None]
  - VISION BLURRED [None]
